FAERS Safety Report 4404798-8 (Version None)
Quarter: 2004Q3

REPORT INFORMATION
  Report Type: 
  Country: None (occurrence: None)
  Receive Date: 20040720
  Receipt Date: 20040707
  Transmission Date: 20050211
  Serious: Yes (Other)
  Sender: FDA-Public Use
  Company Number: 2004046070

PATIENT
  Sex: Female
  Weight: 39 kg

DRUGS (1)
  1. PIROXICAM [Suspect]
     Indication: BACK PAIN
     Dosage: 20 MG (20 MG, 1 IN 1 D), ORAL
     Route: 048

REACTIONS (2)
  - ARTHRALGIA [None]
  - DRUG HYPERSENSITIVITY [None]
